FAERS Safety Report 10041724 (Version 1)
Quarter: 2014Q1

REPORT INFORMATION
  Report Type: Spontaneous
  Country: BR (occurrence: BR)
  Receive Date: 20140327
  Receipt Date: 20140327
  Transmission Date: 20141002
  Serious: Yes (Other)
  Sender: FDA-Public Use
  Company Number: BR-ABBVIE-14P-020-1217876-00

PATIENT
  Sex: Female
  Weight: 104 kg

DRUGS (5)
  1. DEPAKOTE [Suspect]
     Indication: BIPOLAR DISORDER
     Dosage: IN THE MORNING AND AT NIGHT, DAILY DOSE: 2000MG
     Route: 048
     Dates: start: 200610
  2. GLIFAGE [Suspect]
     Indication: DIABETES MELLITUS
     Route: 048
     Dates: start: 201301
  3. DIOVAN HCT [Suspect]
     Indication: HYPERTENSION
     Dosage: FORM STRENGTH: 320MG + 12.5MG. PATIENT THINKS SHE TAKES 1 PER DAY BUT SHE IS NOT SURE
     Route: 048
     Dates: start: 2013
  4. VENLAFAXINE [Concomitant]
     Indication: MOOD SWINGS
     Route: 048
     Dates: start: 200610
  5. VENLAFAXINE [Concomitant]
     Indication: BIPOLAR DISORDER

REACTIONS (6)
  - Diabetes mellitus [Recovering/Resolving]
  - Hypothyroidism [Recovering/Resolving]
  - Hypertension [Recovering/Resolving]
  - Dizziness [Recovered/Resolved]
  - Medication residue present [Not Recovered/Not Resolved]
  - Wrong technique in drug usage process [Unknown]
